FAERS Safety Report 17446817 (Version 2)
Quarter: 2020Q1

REPORT INFORMATION
  Report Type: Spontaneous
  Country: GB (occurrence: GB)
  Receive Date: 20200221
  Receipt Date: 20200330
  Transmission Date: 20200409
  Serious: Yes (Hospitalization, Other)
  Sender: FDA-Public Use
  Company Number: GB-SA-2020SA045541

PATIENT
  Age: 40 Year
  Sex: Male
  Weight: 113 kg

DRUGS (5)
  1. PHENYTOIN SODIUM. [Suspect]
     Active Substance: PHENYTOIN SODIUM
     Indication: EPILEPSY
     Dosage: 700 MG, QD
     Dates: start: 19840101
  2. PLERIXAFOR [Suspect]
     Active Substance: PLERIXAFOR
     Indication: PRODUCT USE IN UNAPPROVED INDICATION
     Dosage: 24 MG
     Route: 058
     Dates: start: 20200115, end: 20200115
  3. MIRTAZAPINE. [Concomitant]
     Active Substance: MIRTAZAPINE
     Indication: DEPRESSION
     Dosage: 30 MG, QD
  4. GRANOCYTE [Suspect]
     Active Substance: LENOGRASTIM
     Dosage: 1157 UG
     Route: 058
     Dates: start: 20200111, end: 20200115
  5. PHENOBARBITAL. [Concomitant]
     Active Substance: PHENOBARBITAL
     Indication: EPILEPSY
     Dosage: 240 MG, QD
     Dates: start: 19840101

REACTIONS (9)
  - C-reactive protein increased [Recovering/Resolving]
  - Malaise [Recovering/Resolving]
  - Pyrexia [Recovered/Resolved]
  - Splenic infarction [Recovering/Resolving]
  - Staphylococcal infection [Recovered/Resolved]
  - Pericardial effusion [Recovering/Resolving]
  - Rash pustular [Recovering/Resolving]
  - Abdominal distension [Recovering/Resolving]
  - Pleural effusion [Recovering/Resolving]

NARRATIVE: CASE EVENT DATE: 20200119
